FAERS Safety Report 17606116 (Version 1)
Quarter: 2020Q1

REPORT INFORMATION
  Report Type: Report from Study
  Country: ES (occurrence: ES)
  Receive Date: 20200331
  Receipt Date: 20200331
  Transmission Date: 20200409
  Serious: Yes (Life-Threatening, Hospitalization)
  Sender: FDA-Public Use
  Company Number: ES-TEVA-2020-ES-1212445

PATIENT
  Age: 53 Year
  Sex: Female

DRUGS (6)
  1. QUETIAPINA (1136A) [Suspect]
     Active Substance: QUETIAPINE
     Indication: SUICIDE ATTEMPT
     Dosage: 6 GRAM
     Route: 048
     Dates: start: 20191011, end: 20191011
  2. RIVOTRIL 2 MG COMPRIMIDOS , 60 COMPRIMIDOS [Concomitant]
     Indication: BORDERLINE PERSONALITY DISORDER
     Dosage: 8 MG
     Route: 048
     Dates: end: 20191010
  3. RIVOTRIL [Interacting]
     Active Substance: CLONAZEPAM
     Indication: SUICIDE ATTEMPT
     Dosage: 16 MG
     Route: 048
     Dates: start: 20191011, end: 20191011
  4. QUETIAPINA (1136A) [Concomitant]
     Active Substance: QUETIAPINE
     Indication: BORDERLINE PERSONALITY DISORDER
     Dosage: 150 MG
     Route: 048
     Dates: end: 20191010
  5. PREGABALINA (3897A) [Concomitant]
     Active Substance: PREGABALIN
     Indication: BORDERLINE PERSONALITY DISORDER
     Route: 048
  6. ESCITALOPRAM [Concomitant]
     Active Substance: ESCITALOPRAM OXALATE
     Indication: BORDERLINE PERSONALITY DISORDER
     Dosage: 20 MG
     Route: 048

REACTIONS (4)
  - Respiratory depression [Recovered/Resolved]
  - Drug interaction [Unknown]
  - Coma [Recovered/Resolved]
  - Intentional overdose [Recovered/Resolved]

NARRATIVE: CASE EVENT DATE: 20191011
